FAERS Safety Report 7939691-7 (Version None)
Quarter: 2011Q4

REPORT INFORMATION
  Report Type: 
  Country: None (occurrence: None)
  Receive Date: 20111125
  Receipt Date: 20111117
  Transmission Date: 20120403
  Serious: Yes (Other)
  Sender: FDA-Public Use
  Company Number: PHHY2010AU08449

PATIENT
  Sex: Female

DRUGS (1)
  1. GLEEVEC [Suspect]
     Indication: CHRONIC MYELOID LEUKAEMIA
     Dosage: 400 MG, DAILY
     Route: 048
     Dates: start: 20100201

REACTIONS (10)
  - MALAISE [None]
  - DIARRHOEA [None]
  - EYE SWELLING [None]
  - LACRIMATION INCREASED [None]
  - MUSCLE SPASMS [None]
  - INTERVERTEBRAL DISC PROTRUSION [None]
  - RASH [None]
  - VISION BLURRED [None]
  - NAUSEA [None]
  - BLOOD PRESSURE INCREASED [None]
